FAERS Safety Report 8599558-0 (Version None)
Quarter: 2012Q3

REPORT INFORMATION
  Report Type: 
  Country: None (occurrence: None)
  Receive Date: 20120808
  Receipt Date: 20120808
  Transmission Date: 20120928
  Serious: Yes (Other)
  Sender: FDA-Public Use
  Company Number: None

PATIENT
  Age: 16 Year
  Sex: Female
  Weight: 51.7101 kg

DRUGS (3)
  1. CELEXA [Suspect]
     Indication: DEPRESSION
     Dosage: 60MG - COMBINED 20MG -40MG- AT BEDTIME PO
     Route: 048
     Dates: start: 20080401, end: 20120731
  2. CELEXA [Suspect]
     Indication: ANXIETY
     Dosage: 60MG - COMBINED 20MG -40MG- AT BEDTIME PO
     Route: 048
     Dates: start: 20080401, end: 20120731
  3. CELEXA [Suspect]

REACTIONS (4)
  - LOSS OF CONSCIOUSNESS [None]
  - PANIC DISORDER [None]
  - PALPITATIONS [None]
  - ANXIETY DISORDER [None]
